FAERS Safety Report 16329150 (Version 1)
Quarter: 2019Q2

REPORT INFORMATION
  Report Type: Report from Study
  Country: None (occurrence: US)
  Receive Date: 20190520
  Receipt Date: 20190520
  Transmission Date: 20190711
  Serious: Yes (Other)
  Sender: FDA-Public Use
  Company Number: US-ABBVIE-19K-163-2785782-00

PATIENT
  Sex: Female

DRUGS (1)
  1. HUMIRA [Suspect]
     Active Substance: ADALIMUMAB
     Indication: CROHN^S DISEASE
     Route: 058

REACTIONS (4)
  - Small intestinal obstruction [Recovered/Resolved]
  - Small intestinal obstruction [Recovered/Resolved]
  - Intervertebral disc degeneration [Recovering/Resolving]
  - Small intestinal obstruction [Recovering/Resolving]

NARRATIVE: CASE EVENT DATE: 201805
